FAERS Safety Report 4385072-5 (Version None)
Quarter: 2004Q2

REPORT INFORMATION
  Report Type: 
  Country: None (occurrence: None)
  Receive Date: 20040624
  Receipt Date: 20040624
  Transmission Date: 20050107
  Serious: Yes (Hospitalization)
  Sender: FDA-Public Use
  Company Number: None

PATIENT
  Age: 53 Year
  Sex: Male
  Weight: 75.9 kg

DRUGS (3)
  1. PEGINTERFERON ALFA 2A [Suspect]
     Indication: HEPATITIS C
     Dosage: 180 MG SC/WEEK
     Route: 058
     Dates: start: 20040128, end: 20040323
  2. RIBAVIRIN [Concomitant]
  3. EPOGEN [Concomitant]

REACTIONS (3)
  - CONDITION AGGRAVATED [None]
  - DEPRESSION [None]
  - SUICIDAL IDEATION [None]
